FAERS Safety Report 14931530 (Version 2)
Quarter: 2018Q2

REPORT INFORMATION
  Report Type: Report from Study
  Country: JP (occurrence: JP)
  Receive Date: 20180524
  Receipt Date: 20180529
  Transmission Date: 20180711
  Serious: Yes (Hospitalization)
  Sender: FDA-Public Use
  Company Number: JP-ROCHE-2127779

PATIENT
  Age: 8 Year
  Sex: Male
  Weight: 25.1 kg

DRUGS (2)
  1. EMICIZUMAB. [Suspect]
     Active Substance: EMICIZUMAB-KXWH
     Indication: FACTOR VIII DEFICIENCY
     Route: 058
     Dates: start: 20171122
  2. EMICIZUMAB. [Suspect]
     Active Substance: EMICIZUMAB-KXWH
     Route: 058
     Dates: start: 20171220

REACTIONS (1)
  - Soft tissue haemorrhage [Recovered/Resolved]

NARRATIVE: CASE EVENT DATE: 20180517
